FAERS Safety Report 17187737 (Version 1)
Quarter: 2019Q4

REPORT INFORMATION
  Report Type: Spontaneous
  Country: FR (occurrence: FR)
  Receive Date: 20191221
  Receipt Date: 20191221
  Transmission Date: 20200122
  Serious: Yes (Death, Other)
  Sender: FDA-Public Use
  Company Number: FR-AUROBINDO-AUR-APL-2015-01041

PATIENT
  Age: 58 Year
  Sex: Female

DRUGS (1)
  1. OXALIPLATIN. [Suspect]
     Active Substance: OXALIPLATIN
     Indication: ADENOCARCINOMA OF COLON
     Dosage: UNK
     Route: 065

REACTIONS (6)
  - Haemolytic anaemia [Fatal]
  - Back pain [Fatal]
  - Hypothermia [Fatal]
  - Haemoglobinuria [Fatal]
  - Anaemia [Unknown]
  - Disseminated intravascular coagulation [Fatal]
